FAERS Safety Report 8602796 (Version 2)
Quarter: 2013Q4

REPORT INFORMATION
  Report Type: Report from Study
  Country: CA (occurrence: CA)
  Receive Date: 20120607
  Receipt Date: 20131126
  Transmission Date: 20140711
  Serious: Yes (Death)
  Sender: FDA-Public Use
  Company Number: CA-ROCHE-1072504

PATIENT
  Sex: 0

DRUGS (8)
  1. RITUXIMAB [Suspect]
     Indication: NON-HODGKIN^S LYMPHOMA UNSPECIFIED HISTOLOGY AGGRESSIVE
     Route: 065
  2. RITUXIMAB [Suspect]
     Route: 065
     Dates: start: 2006
  3. CYCLOPHOSPHAMIDE [Suspect]
     Indication: NON-HODGKIN^S LYMPHOMA UNSPECIFIED HISTOLOGY AGGRESSIVE
     Dosage: 1.75 G/M2 DAILY DAYS 1-3. BASED UPON BODY WEIGHT
     Route: 065
  4. CYCLOPHOSPHAMIDE [Suspect]
     Dosage: 5.25G/M2
     Route: 065
     Dates: start: 1995
  5. ETOPOSIDE [Suspect]
     Indication: NON-HODGKIN^S LYMPHOMA UNSPECIFIED HISTOLOGY AGGRESSIVE
     Dosage: DAILY DAYS 1-3
     Route: 065
  6. ETOPOSIDE [Suspect]
     Dosage: 1.05G/M2
     Route: 065
     Dates: start: 1995
  7. CISPLATIN [Suspect]
     Indication: NON-HODGKIN^S LYMPHOMA UNSPECIFIED HISTOLOGY AGGRESSIVE
     Dosage: 35 MG/M2 DAILY DAYS 1-3. BASED UPON BODY WEIGHT
     Route: 065
  8. CISPLATIN [Suspect]
     Route: 065
     Dates: start: 1995

REACTIONS (1)
  - Death [Fatal]
